FAERS Safety Report 24053173 (Version 1)
Quarter: 2024Q3

REPORT INFORMATION
  Report Type: Spontaneous
  Country: CN (occurrence: CN)
  Receive Date: 20240705
  Receipt Date: 20240705
  Transmission Date: 20241017
  Serious: Yes (Other)
  Sender: ABBVIE
  Company Number: CN-JNJFOC-20240674102

PATIENT
  Age: 82 Year
  Sex: Male

DRUGS (4)
  1. IBRUTINIB [Suspect]
     Active Substance: IBRUTINIB
     Indication: Lymphocytic lymphoma
     Route: 048
     Dates: start: 201903, end: 201905
  2. IBRUTINIB [Suspect]
     Active Substance: IBRUTINIB
     Indication: Lymphocytic lymphoma
     Route: 048
     Dates: start: 20190506
  3. IBRUTINIB [Suspect]
     Active Substance: IBRUTINIB
     Indication: Lymphocytic lymphoma
     Route: 048
  4. RITUXIMAB [Suspect]
     Active Substance: RITUXIMAB
     Indication: Lymphocytic lymphoma
     Route: 065

REACTIONS (5)
  - Acute myocardial infarction [Recovered/Resolved]
  - Cholelithiasis [Recovered/Resolved]
  - Cholecystitis acute [Recovered/Resolved]
  - Product use issue [Unknown]
  - Pneumonia [Recovered/Resolved]

NARRATIVE: CASE EVENT DATE: 20190901
